FAERS Safety Report 16919792 (Version 1)
Quarter: 2019Q4

REPORT INFORMATION
  Report Type: Spontaneous
  Country: US (occurrence: US)
  Receive Date: 20191015
  Receipt Date: 20191015
  Transmission Date: 20200122
  Serious: Yes (Hospitalization)
  Sender: FDA-Public Use
  Company Number: None

PATIENT
  Age: 14 Year
  Sex: Male

DRUGS (4)
  1. SODIUM CHLORIDE 7% NEB SOLN [Concomitant]
     Dates: start: 20180810
  2. ALBUTEROL 0.083% INH SOLN [Concomitant]
     Active Substance: ALBUTEROL
     Dates: start: 20180223
  3. PULMOZYME [Suspect]
     Active Substance: DORNASE ALFA
     Indication: CYSTIC FIBROSIS
     Route: 055
     Dates: start: 20160808
  4. BUDESONIDE 0.5MG/2ML NEB SOLN [Concomitant]
     Dates: start: 20190925

REACTIONS (2)
  - Cystic fibrosis [None]
  - Condition aggravated [None]

NARRATIVE: CASE EVENT DATE: 20191001
